FAERS Safety Report 10945163 (Version 1)
Quarter: 2015Q1

REPORT INFORMATION
  Report Type: Report from Study
  Country: US (occurrence: US)
  Receive Date: 20150323
  Receipt Date: 20150323
  Transmission Date: 20150721
  Serious: Yes (Hospitalization)
  Sender: FDA-Public Use
  Company Number: US-SA-2015SA033556

PATIENT
  Age: 43 Year
  Sex: Female
  Weight: 55.79 kg

DRUGS (2)
  1. CABAZITAXEL [Suspect]
     Active Substance: CABAZITAXEL
     Indication: GASTRIC CANCER
     Route: 065
     Dates: start: 20150223, end: 20150223
  2. CABAZITAXEL [Suspect]
     Active Substance: CABAZITAXEL
     Indication: GASTRIC CANCER
     Route: 065
     Dates: start: 20150202, end: 20150202

REACTIONS (1)
  - Ascites [Unknown]

NARRATIVE: CASE EVENT DATE: 20150308
